FAERS Safety Report 4382183-5 (Version None)
Quarter: 2004Q2

REPORT INFORMATION
  Report Type: 
  Country: None (occurrence: None)
  Receive Date: 20040618
  Receipt Date: 20040618
  Transmission Date: 20050107
  Serious: Yes (Other)
  Sender: FDA-Public Use
  Company Number: None

PATIENT
  Age: 57 Year
  Sex: Female
  Weight: 107.0489 kg

DRUGS (2)
  1. ZOLOFT [Suspect]
     Indication: DEPRESSION
     Dosage: 1 PER DAY
     Dates: start: 19920318, end: 20040504
  2. ZOLOFT [Suspect]
     Indication: PANIC ATTACK
     Dosage: 1 PER DAY
     Dates: start: 19920318, end: 20040504

REACTIONS (1)
  - DRUG WITHDRAWAL SYNDROME [None]
